FAERS Safety Report 12465166 (Version 1)
Quarter: 2016Q2

REPORT INFORMATION
  Report Type: Spontaneous
  Country: US (occurrence: US)
  Receive Date: 20160614
  Receipt Date: 20160614
  Transmission Date: 20160815
  Serious: Yes (Hospitalization, Other)
  Sender: FDA-Public Use
  Company Number: US-MDT-ADR-2016-01079

PATIENT
  Age: 10 Year
  Sex: Male

DRUGS (2)
  1. BACLOFEN. [Suspect]
     Active Substance: BACLOFEN
     Route: 037
  2. PHENOBARBITAL. [Suspect]
     Active Substance: PHENOBARBITAL
     Route: 065

REACTIONS (3)
  - Irritability [Unknown]
  - Muscle spasticity [Unknown]
  - Lethargy [Unknown]

NARRATIVE: CASE EVENT DATE: 201605
